FAERS Safety Report 5256816-5 (Version None)
Quarter: 2007Q1

REPORT INFORMATION
  Report Type: 
  Country: None (occurrence: None)
  Receive Date: 20070306
  Receipt Date: 20070220
  Transmission Date: 20070707
  Serious: Yes (Death)
  Sender: FDA-Public Use
  Company Number: US-ELI_LILLY_AND_COMPANY-US200702003471

PATIENT
  Age: 30 Year
  Sex: Female
  Weight: 123.81 kg

DRUGS (6)
  1. CYMBALTA [Suspect]
     Dosage: 60 MG, UNK
  2. ALPRAZOLAM [Concomitant]
  3. QUETIAPINE FUMARATE [Concomitant]
  4. ATENOLOL [Concomitant]
  5. LIDOCAINE [Concomitant]
  6. PROPOXYPHENE HYDROCHLORIDE [Concomitant]

REACTIONS (1)
  - MULTIPLE DRUG OVERDOSE [None]
